FAERS Safety Report 22161765 (Version 1)
Quarter: 2023Q1

REPORT INFORMATION
  Report Type: Spontaneous
  Country: US (occurrence: US)
  Receive Date: 20230331
  Receipt Date: 20230331
  Transmission Date: 20230418
  Serious: No
  Sender: FDA-Public Use
  Company Number: US-BRISTOL-MYERS SQUIBB COMPANY-2023-046501

PATIENT
  Age: 60 Year
  Sex: Male

DRUGS (1)
  1. SOTYKTU [Suspect]
     Active Substance: DEUCRAVACITINIB
     Indication: Psoriatic arthropathy
     Dosage: FREQUENCY: DAILY
     Route: 048
     Dates: start: 202303

REACTIONS (2)
  - Constipation [Unknown]
  - Herpes zoster [Unknown]
